FAERS Safety Report 5352258-2 (Version None)
Quarter: 2007Q2

REPORT INFORMATION
  Report Type: 
  Country: None (occurrence: None)
  Receive Date: 20070521
  Receipt Date: 20070329
  Transmission Date: 20071010
  Serious: No
  Sender: FDA-Public Use
  Company Number: WAES 0703USA05556

PATIENT
  Age: 24 Year
  Sex: Female

DRUGS (5)
  1. JANUVIA [Suspect]
     Indication: DIABETES MELLITUS NON-INSULIN-DEPENDENT
     Dosage: SEE IMAGE
     Route: 048
     Dates: start: 20070101, end: 20070101
  2. JANUVIA [Suspect]
     Indication: DIABETES MELLITUS NON-INSULIN-DEPENDENT
     Dosage: SEE IMAGE
     Route: 048
     Dates: start: 20070201, end: 20070101
  3. ACTOS [Concomitant]
  4. NSULIN [Concomitant]
  5. METFORMIN HCL [Concomitant]

REACTIONS (3)
  - ABDOMINAL PAIN [None]
  - HYPOGLYCAEMIA [None]
  - NAUSEA [None]
